FAERS Safety Report 4694206-4 (Version None)
Quarter: 2005Q2

REPORT INFORMATION
  Report Type: 
  Country: None (occurrence: None)
  Receive Date: 20050614
  Receipt Date: 20050302
  Transmission Date: 20051028
  Serious: No
  Sender: FDA-Public Use
  Company Number: USA050392180

PATIENT
  Age: 76 Year
  Sex: Male

DRUGS (6)
  1. CIALIS [Suspect]
     Dosage: 20 MG AS NEEDED
     Dates: start: 20040301
  2. LIPITOR [Concomitant]
  3. AVAPRO [Concomitant]
  4. CELEBREX [Concomitant]
  5. ANTIHISTAMINE [Concomitant]
  6. LIBRIUM [Concomitant]

REACTIONS (2)
  - DRUG INEFFECTIVE [None]
  - THERAPEUTIC RESPONSE DECREASED [None]
